FAERS Safety Report 4764359-8 (Version None)
Quarter: 2005Q3

REPORT INFORMATION
  Report Type: 
  Country: None (occurrence: None)
  Receive Date: 20050907
  Receipt Date: 20050824
  Transmission Date: 20060218
  Serious: Yes (Hospitalization, Disabling)
  Sender: FDA-Public Use
  Company Number: DSA_26921_2005

PATIENT
  Age: 72 Year
  Sex: Male

DRUGS (4)
  1. ATIVAN [Suspect]
     Dosage: DF ONCE
     Dates: start: 20050501
  2. DIABETIC MEDICATION [Concomitant]
  3. HEART MEDICATION [Concomitant]
  4. RITALIN [Concomitant]

REACTIONS (10)
  - AMNESIA [None]
  - BLINDNESS [None]
  - CEREBROVASCULAR ACCIDENT [None]
  - DEAFNESS [None]
  - DYSPNOEA [None]
  - FEELING ABNORMAL [None]
  - HEART RATE DECREASED [None]
  - LOSS OF CONSCIOUSNESS [None]
  - MYOCARDIAL INFARCTION [None]
  - PARALYSIS [None]
